FAERS Safety Report 8789405 (Version 1)
Quarter: 2012Q4

REPORT INFORMATION
  Report Type: Spontaneous
  Country: US (occurrence: None)
  Receive Date: 20120910
  Receipt Date: 20120910
  Transmission Date: 20130627
  Serious: No
  Sender: FDA-Public Use
  Company Number: None

PATIENT
  Age: 8 Year
  Sex: Female
  Weight: 24.5 kg

DRUGS (1)
  1. METHYLPHENIDATE [Suspect]
     Dosage: Methaphenidate 2 times daily PO

End date of use: redacted 05/2011
     Route: 048
     Dates: start: 20111021, end: 201105

REACTIONS (2)
  - Product substitution issue [None]
  - Therapeutic response unexpected with drug substitution [None]
